FAERS Safety Report 7548563-1 (Version None)
Quarter: 2011Q2

REPORT INFORMATION
  Report Type: 
  Country: None (occurrence: None)
  Receive Date: 20110615
  Receipt Date: 20100914
  Transmission Date: 20111010
  Serious: Yes (Hospitalization)
  Sender: FDA-Public Use
  Company Number: US-ENDO PHARMACEUTICALS INC.-ZOLP20110022

PATIENT
  Sex: Female

DRUGS (3)
  1. ZOLPIDEM TARTRATE [Suspect]
     Indication: SLEEP DISORDER
     Dosage: 5 MG
     Route: 048
  2. SEROQUEL [Suspect]
     Dosage: UNKNOWN
  3. CEREFOLIN [Concomitant]
     Dosage: UNKNOWN
     Route: 065

REACTIONS (6)
  - CYANOSIS [None]
  - UNRESPONSIVE TO STIMULI [None]
  - FEELING COLD [None]
  - DRUG SCREEN POSITIVE [None]
  - LETHARGY [None]
  - HYPOTENSION [None]
